FAERS Safety Report 8617218-4 (Version None)
Quarter: 2012Q3

REPORT INFORMATION
  Report Type: 
  Country: None (occurrence: None)
  Receive Date: 20120823
  Receipt Date: 20120808
  Transmission Date: 20120928
  Serious: Yes (Other)
  Sender: FDA-Public Use
  Company Number: GB-WATSON-2012-14610

PATIENT
  Sex: Male

DRUGS (3)
  1. MIRTAZAPINE [Suspect]
     Indication: PRODUCT USED FOR UNKNOWN INDICATION
     Dosage: 15 MG, UNKNOWN
     Route: 065
     Dates: start: 20120104, end: 20120117
  2. MIRTAZAPINE [Suspect]
     Dosage: 30 MG, UNKNOWN
     Route: 065
     Dates: start: 20120117
  3. MIRTAZAPINE [Suspect]
     Dosage: 15 MG, UNKNOWN
     Route: 065

REACTIONS (4)
  - IRRITABILITY [None]
  - PARANOIA [None]
  - PARAMNESIA [None]
  - PSYCHOTIC DISORDER [None]
